FAERS Safety Report 8527262 (Version 8)
Quarter: 2013Q2

REPORT INFORMATION
  Report Type: Spontaneous
  Country: US (occurrence: US)
  Receive Date: 20120424
  Receipt Date: 20130425
  Transmission Date: 20140414
  Serious: Yes (Life-Threatening, Hospitalization, Congenital Anomaly, Other)
  Sender: FDA-Public Use
  Company Number: US-PFIZER INC-2012097575

PATIENT
  Sex: Male
  Weight: 3.4 kg

DRUGS (20)
  1. HYDROCODONE W/ACETAMINOPHEN [Concomitant]
     Dosage: 500 MG, UNK
     Route: 064
     Dates: start: 20061006
  2. AZITHROMYCIN [Concomitant]
     Dosage: 250 MG, UNK
     Route: 064
     Dates: start: 20061220
  3. LEVAQUIN [Concomitant]
     Indication: URINARY TRACT INFECTION
     Dosage: UNK
     Route: 064
  4. MACROBID [Concomitant]
     Indication: URINARY TRACT INFECTION
     Dosage: UNK
     Route: 064
  5. EFFEXOR XR [Suspect]
     Indication: DEPRESSION
     Dosage: 75 MG, UNK
     Route: 064
     Dates: start: 20060224, end: 200608
  6. EFFEXOR [Suspect]
     Indication: DEPRESSIVE SYMPTOM
     Dosage: 50 MG, UNK
     Route: 064
     Dates: start: 20060809, end: 200608
  7. PROZAC [Concomitant]
     Indication: DEPRESSION
     Dosage: UNK
     Route: 064
     Dates: start: 1996, end: 200606
  8. PROZAC [Concomitant]
     Dosage: UNK
     Route: 064
     Dates: start: 2006
  9. PROZAC [Concomitant]
     Dosage: 20 MG DAILY
     Route: 064
     Dates: start: 20060821
  10. PROZAC [Concomitant]
     Dosage: 30 MG, UNK
     Route: 064
     Dates: start: 20070313
  11. CLONAZINE [Concomitant]
     Indication: ANXIETY
     Dosage: UNK
     Route: 064
     Dates: start: 20060809
  12. PHENTERMINE [Concomitant]
     Dosage: UNK
     Route: 064
     Dates: start: 20060809
  13. LORTAB [Concomitant]
     Indication: MIGRAINE
     Dosage: HALF TABLET
     Route: 064
     Dates: start: 200610
  14. TYLENOL [Concomitant]
     Indication: MIGRAINE
     Dosage: UNK
     Route: 064
  15. SUDAFED [Concomitant]
     Indication: MIGRAINE
     Dosage: UNK
     Route: 064
  16. PRENATAL VITAMINS [Concomitant]
     Dosage: ONE TABLET PER DAY
     Route: 064
  17. FLUOXETINE [Concomitant]
     Dosage: 20 MG, UNK
     Route: 064
     Dates: start: 20060821
  18. FLUOXETINE [Concomitant]
     Dosage: 10 MG, UNK
     Route: 064
     Dates: start: 20070206
  19. CAL-NATE VITAMINS [Concomitant]
     Dosage: UNK
     Route: 064
     Dates: start: 20060829
  20. PROMETHAZINE [Concomitant]
     Dosage: 25 MG, UNK
     Route: 064
     Dates: start: 20061006

REACTIONS (3)
  - Maternal exposure timing unspecified [Unknown]
  - Craniosynostosis [Unknown]
  - Head deformity [Unknown]
